FAERS Safety Report 24453228 (Version 1)
Quarter: 2024Q4

REPORT INFORMATION
  Report Type: Spontaneous
  Country: US (occurrence: US)
  Receive Date: 20241017
  Receipt Date: 20241017
  Transmission Date: 20250115
  Serious: No
  Sender: SUNOVION
  Company Number: US-UROVANT SCIENCES GMBH-202406-URV-000849

PATIENT
  Age: 73 Year
  Sex: Female
  Weight: 73.7 kg

DRUGS (22)
  1. GEMTESA [Suspect]
     Active Substance: VIBEGRON
     Dosage: 75 MG, QD
     Route: 048
     Dates: start: 20240425
  2. GEMTESA [Suspect]
     Active Substance: VIBEGRON
     Indication: Dysuria
  3. GEMTESA [Suspect]
     Active Substance: VIBEGRON
     Indication: Urinary incontinence
  4. CELECOXIB [Concomitant]
     Active Substance: CELECOXIB
     Indication: Product used for unknown indication
  5. COREG [Concomitant]
     Active Substance: CARVEDILOL
     Indication: Product used for unknown indication
     Dosage: 12.5 MG
  6. CYMBALTA [Concomitant]
     Active Substance: DULOXETINE HYDROCHLORIDE
     Indication: Product used for unknown indication
     Dosage: 60 MG
  7. DULOXETINE HYDROCHLORIDE [Concomitant]
     Active Substance: DULOXETINE HYDROCHLORIDE
     Indication: Product used for unknown indication
     Dosage: UNK
  8. ESTRADIOL [Concomitant]
     Active Substance: ESTRADIOL
     Indication: Product used for unknown indication
     Dosage: 10 MICROGRAM
  9. ESTRADIOL [Concomitant]
     Active Substance: ESTRADIOL
     Dosage: 0.01 PERCENT CREAM
  10. FAMOTIDINE [Concomitant]
     Active Substance: FAMOTIDINE
     Indication: Product used for unknown indication
     Dosage: 40 MG
  11. FERROUS SULFATE ANHYDROUS [Concomitant]
     Active Substance: FERROUS SULFATE ANHYDROUS
     Indication: Product used for unknown indication
     Dosage: 325 MG
  12. HIPREX [Concomitant]
     Active Substance: METHENAMINE HIPPURATE
     Indication: Product used for unknown indication
     Dosage: 1 GRAM, BID, WITH VITAMIN C
  13. ALBUTEROL\IPRATROPIUM [Concomitant]
     Active Substance: ALBUTEROL\IPRATROPIUM
     Indication: Product used for unknown indication
     Dosage: UNK
  14. MELOXICAM [Concomitant]
     Active Substance: MELOXICAM
     Indication: Product used for unknown indication
     Dosage: 7.5 MG
  15. METFORMIN HYDROCHLORIDE [Concomitant]
     Active Substance: METFORMIN HYDROCHLORIDE
     Indication: Product used for unknown indication
     Dosage: 500 MG
  16. NITROFURANTOIN [Concomitant]
     Active Substance: NITROFURANTOIN
     Indication: Product used for unknown indication
     Dosage: 100 MG
  17. OLMESARTAN MEDOXOMIL [Concomitant]
     Active Substance: OLMESARTAN MEDOXOMIL
     Indication: Product used for unknown indication
     Dosage: 20 MG
  18. OMEPRAZOLE [Concomitant]
     Active Substance: OMEPRAZOLE
     Indication: Product used for unknown indication
     Dosage: 20 MG
  19. POTASSIUM CHLORIDE [Concomitant]
     Active Substance: POTASSIUM CHLORIDE
     Indication: Product used for unknown indication
     Dosage: UNK
  20. ROFLUMILAST [Concomitant]
     Active Substance: ROFLUMILAST
     Indication: Product used for unknown indication
     Dosage: 500 MICROGRAM
  21. ROPINIROLE [Concomitant]
     Active Substance: ROPINIROLE
     Indication: Product used for unknown indication
     Dosage: 2 MG, EXPENDED RELEASE 24HR
  22. ZETIA [Concomitant]
     Active Substance: EZETIMIBE
     Indication: Product used for unknown indication
     Dosage: 10 MG

REACTIONS (11)
  - Therapeutic product effect incomplete [Unknown]
  - Abdominal pain upper [Not Recovered/Not Resolved]
  - Perineal pain [Unknown]
  - Pelvic pain [Unknown]
  - Diarrhoea [Unknown]
  - Atrophic vulvovaginitis [Unknown]
  - Back pain [Unknown]
  - Gout [Unknown]
  - Renal cyst [Unknown]
  - Cystitis [Unknown]
  - Peripheral swelling [Unknown]

NARRATIVE: CASE EVENT DATE: 20240425
